FAERS Safety Report 23091894 (Version 1)
Quarter: 2023Q4

REPORT INFORMATION
  Report Type: Spontaneous
  Country: US (occurrence: US)
  Receive Date: 20231020
  Receipt Date: 20231020
  Transmission Date: 20240110
  Serious: No
  Sender: FDA-Public Use
  Company Number: US-SANOFI-01802415

PATIENT
  Age: 26 Year
  Sex: Female

DRUGS (1)
  1. DUPIXENT [Suspect]
     Active Substance: DUPILUMAB
     Indication: Asthma
     Dosage: 300 MG, QOW

REACTIONS (6)
  - Dermatosis [Unknown]
  - Symptom recurrence [Unknown]
  - Rash maculo-papular [Unknown]
  - Rash pruritic [Unknown]
  - Condition aggravated [Unknown]
  - Serum sickness-like reaction [Unknown]
